FAERS Safety Report 19012235 (Version 1)
Quarter: 2021Q1

REPORT INFORMATION
  Report Type: Report from Study
  Country: US (occurrence: US)
  Receive Date: 20210316
  Receipt Date: 20210316
  Transmission Date: 20210420
  Serious: Yes (Hospitalization)
  Sender: FDA-Public Use
  Company Number: US-BAUSCH-BL-2021-008979

PATIENT
  Age: 77 Year
  Sex: Male

DRUGS (1)
  1. XIFAXAN [Suspect]
     Active Substance: RIFAXIMIN
     Indication: HEPATIC ENCEPHALOPATHY
     Dosage: LITTLE MORE THAN A YEAR AGO
     Route: 048

REACTIONS (6)
  - Kidney infection [Unknown]
  - Condition aggravated [Unknown]
  - Asymptomatic COVID-19 [Unknown]
  - Dementia Alzheimer^s type [Unknown]
  - Cystitis [Unknown]
  - Aggression [Unknown]

NARRATIVE: CASE EVENT DATE: 2021
